FAERS Safety Report 23870958 (Version 2)
Quarter: 2024Q2

REPORT INFORMATION
  Report Type: Report from Study
  Country: US (occurrence: US)
  Receive Date: 20240518
  Receipt Date: 20240524
  Transmission Date: 20240716
  Serious: Yes (Other)
  Sender: FDA-Public Use
  Company Number: US-SA-SAC20240510000977

PATIENT
  Age: 41 Year
  Sex: Male

DRUGS (3)
  1. EFMOROCTOCOG ALFA [Suspect]
     Active Substance: EFMOROCTOCOG ALFA
     Indication: Factor VIII deficiency
     Dosage: 4107 IU, PRN  FOR BLEEDING. MAY REPEAT DOSE AFTER 24 HOURS AS NEEDED
     Route: 042
     Dates: start: 20210605
  2. EFMOROCTOCOG ALFA [Suspect]
     Active Substance: EFMOROCTOCOG ALFA
     Indication: Factor VIII deficiency
     Dosage: 4107 IU, PRN  FOR BLEEDING. MAY REPEAT DOSE AFTER 24 HOURS AS NEEDED
     Route: 042
     Dates: start: 20210605
  3. HEMLIBRA [Concomitant]
     Active Substance: EMICIZUMAB-KXWH
     Indication: Factor VIII deficiency
     Dosage: UNK UNK, QW

REACTIONS (3)
  - Haemarthrosis [Recovering/Resolving]
  - Gait inability [Unknown]
  - Joint swelling [Recovering/Resolving]

NARRATIVE: CASE EVENT DATE: 20240503
